FAERS Safety Report 25976864 (Version 1)
Quarter: 2025Q4

REPORT INFORMATION
  Report Type: Spontaneous
  Country: EU (occurrence: EU)
  Receive Date: 20251029
  Receipt Date: 20251029
  Transmission Date: 20260117
  Serious: Yes (Death, Hospitalization, Disabling, Congenital Anomaly, Other)
  Sender: ALKEM
  Company Number: EU-ALKEM LABORATORIES LIMITED-DE-ALKEM-2025-11485

PATIENT
  Age: 80 Year
  Sex: Male
  Weight: 69 kg

DRUGS (221)
  1. GABAPENTIN [Suspect]
     Active Substance: GABAPENTIN
     Indication: Neuralgia
     Dosage: 100 MILLIGRAM, QD
     Route: 048
  2. AMLODIPINE BESYLATE [Suspect]
     Active Substance: AMLODIPINE BESYLATE
     Indication: Ventricular fibrillation
     Dosage: 150 MILLIGRAM, QD
     Route: 042
  3. AMLODIPINE BESYLATE [Suspect]
     Active Substance: AMLODIPINE BESYLATE
     Indication: Drug therapy
  4. LANSOPRAZOLE [Suspect]
     Active Substance: LANSOPRAZOLE
     Indication: Antacid therapy
     Dosage: 30 MILLIGRAM, QD
     Route: 042
  5. LANSOPRAZOLE [Suspect]
     Active Substance: LANSOPRAZOLE
     Indication: Gastric pH decreased
     Dosage: 1 DOSAGE FORM, QID
     Route: 048
  6. LANSOPRAZOLE [Suspect]
     Active Substance: LANSOPRAZOLE
     Dosage: 60 MILLIGRAM, QD
     Route: 065
  7. LIDOCAINE [Suspect]
     Active Substance: LIDOCAINE
     Indication: Constipation
     Dosage: UNK
     Route: 061
  8. CALCIUM CARBONATE [Suspect]
     Active Substance: CALCIUM CARBONATE
     Indication: Vitamin supplementation
     Dosage: UNK
     Route: 065
  9. CHOLECALCIFEROL [Suspect]
     Active Substance: CHOLECALCIFEROL
     Indication: Vitamin D
     Dosage: 0.25 MICROGRAM, QD
     Route: 048
  10. CHOLECALCIFEROL [Suspect]
     Active Substance: CHOLECALCIFEROL
     Indication: Hypovitaminosis
     Dosage: 500 MILLIGRAM, TID
     Route: 065
  11. CHOLECALCIFEROL [Suspect]
     Active Substance: CHOLECALCIFEROL
     Indication: Vitamin supplementation
  12. ACETAMINOPHEN [Suspect]
     Active Substance: ACETAMINOPHEN
     Indication: Analgesic therapy
     Dosage: 650 MILLIGRAM, QD
     Route: 065
  13. ACETAMINOPHEN [Suspect]
     Active Substance: ACETAMINOPHEN
     Dosage: UNK
     Route: 065
  14. CEFTRIAXONE [Suspect]
     Active Substance: CEFTRIAXONE
     Indication: Bacterial infection
     Dosage: 2 GRAM, QD
     Route: 042
  15. CEFTRIAXONE [Suspect]
     Active Substance: CEFTRIAXONE
     Indication: Sepsis
     Dosage: 2 MILLIGRAM, QD
     Route: 065
  16. ALLANTOIN [Suspect]
     Active Substance: ALLANTOIN
     Indication: Constipation
     Dosage: 17 GRAM, QD
     Route: 048
  17. ALLOPURINOL [Suspect]
     Active Substance: ALLOPURINOL
     Indication: Blood uric acid increased
     Dosage: 1 DOSAGE FORM, QD
     Route: 048
  18. ALLOPURINOL [Suspect]
     Active Substance: ALLOPURINOL
     Dosage: 100 MILLIGRAM, QD (EVERY 1 DAY)`
     Route: 065
  19. ALLOPURINOL [Suspect]
     Active Substance: ALLOPURINOL
     Dosage: 1 DOSAGE FORM
     Route: 065
  20. ALLOPURINOL [Suspect]
     Active Substance: ALLOPURINOL
     Dosage: 100 MICROGRAM, QD
     Route: 065
  21. ALUMINUM HYDROXIDE [Suspect]
     Active Substance: ALUMINUM HYDROXIDE
     Indication: Constipation
     Dosage: 133 MILLILITER
     Route: 054
  22. ALUMINUM HYDROXIDE [Suspect]
     Active Substance: ALUMINUM HYDROXIDE
     Dosage: 133 MILLIGRAM
     Route: 065
  23. ALUMINUM HYDROXIDE [Suspect]
     Active Substance: ALUMINUM HYDROXIDE
     Dosage: UNK
     Route: 065
  24. AMINOBENZOIC ACID [Suspect]
     Active Substance: AMINOBENZOIC ACID
     Indication: Product used for unknown indication
     Dosage: 12.5 MILLIGRAM
     Route: 065
  25. ADVAIR HFA [Suspect]
     Active Substance: FLUTICASONE PROPIONATE\SALMETEROL XINAFOATE
     Indication: Product used for unknown indication
     Dosage: UNK
     Route: 065
  26. AMIODARONE HYDROCHLORIDE [Suspect]
     Active Substance: AMIODARONE HYDROCHLORIDE
     Indication: Ventricular fibrillation
     Dosage: 150 MILLIGRAM, QD
     Route: 042
  27. AMIODARONE HYDROCHLORIDE [Suspect]
     Active Substance: AMIODARONE HYDROCHLORIDE
     Indication: Drug therapy
  28. AMMONIUM CHLORIDE [Suspect]
     Active Substance: AMMONIUM CHLORIDE
     Indication: Thrombosis
     Dosage: 2.5 MILLILITER, QD
     Route: 065
  29. AMMONIUM CHLORIDE\CHLORPHENIRAMINE\SODIUM CITRATE [Suspect]
     Active Substance: AMMONIUM CHLORIDE\CHLORPHENIRAMINE\SODIUM CITRATE
     Indication: Thrombosis
     Dosage: 2.5 MILLIGRAM, QD
     Route: 048
  30. ARANESP [Suspect]
     Active Substance: DARBEPOETIN ALFA
     Indication: Anaemia
     Dosage: 0.71 MICROGRAM, ONCE WEEKLY
     Route: 042
  31. ASCORBIC ACID [Suspect]
     Active Substance: ASCORBIC ACID
     Indication: Constipation
     Dosage: 17 MILLIGRAM, QD
     Route: 048
  32. ATROVENT [Suspect]
     Active Substance: IPRATROPIUM BROMIDE
     Indication: Dyspnoea
     Dosage: 1 DOSAGE FORM (EVERY 0.33 DAY)
     Route: 050
  33. ATROVENT [Suspect]
     Active Substance: IPRATROPIUM BROMIDE
     Indication: Sleep disorder therapy
  34. ATROVENT [Suspect]
     Active Substance: IPRATROPIUM BROMIDE
     Indication: Somnolence
  35. BISMUTH SUBNITRATE [Suspect]
     Active Substance: BISMUTH SUBNITRATE
     Indication: Constipation
     Dosage: 133 MILLILITER, QD
     Route: 054
  36. BISMUTH SUBNITRATE [Suspect]
     Active Substance: BISMUTH SUBNITRATE
     Dosage: UNK
     Route: 065
  37. BETA CAROTENE [Suspect]
     Active Substance: BETA CAROTENE
     Indication: Nutritional supplementation
     Dosage: UNK
     Route: 065
  38. BETAMETHASONE [Suspect]
     Active Substance: BETAMETHASONE
     Indication: Swelling
     Dosage: UNK
     Route: 061
  39. BETAMETHASONE [Suspect]
     Active Substance: BETAMETHASONE
     Indication: Cardiogenic shock
  40. BETAMETHASONE [Suspect]
     Active Substance: BETAMETHASONE
     Indication: Bacterial infection
  41. BETAMETHASONE DIPROPIONATE [Suspect]
     Active Substance: BETAMETHASONE DIPROPIONATE
     Indication: Swelling
     Dosage: 10 MILLIGRAM, QD
     Route: 061
  42. BETAMETHASONE DIPROPIONATE\CLIOQUINOL [Suspect]
     Active Substance: BETAMETHASONE DIPROPIONATE\CLIOQUINOL
     Indication: Swelling
     Dosage: UNK
     Route: 061
  43. BIOTIN [Suspect]
     Active Substance: BIOTIN
     Indication: Vitamin supplementation
     Dosage: UNK
     Route: 042
  44. BIOTIN [Suspect]
     Active Substance: BIOTIN
     Indication: Constipation
  45. BISACODYL [Suspect]
     Active Substance: BISACODYL
     Indication: Constipation
     Dosage: UNK
     Route: 065
  46. BISACODYL [Suspect]
     Active Substance: BISACODYL
     Indication: Ventricular fibrillation
  47. BISMUTH SUBSALICYLATE [Suspect]
     Active Substance: BISMUTH SUBSALICYLATE
     Indication: Constipation
     Dosage: UNK
     Route: 065
  48. BREO ELLIPTA [Suspect]
     Active Substance: FLUTICASONE FUROATE\VILANTEROL TRIFENATATE
     Indication: Nutritional supplementation
     Dosage: UNK
     Route: 065
  49. UNSPECIFIED INGREDIENT [Suspect]
     Active Substance: UNSPECIFIED INGREDIENT
     Indication: Dyspnoea
     Dosage: UNK
     Route: 065
  50. BUFEXAMAC\LIDOCAINE HYDROCHLORIDE [Suspect]
     Active Substance: BUFEXAMAC\LIDOCAINE HYDROCHLORIDE
     Indication: Constipation
     Dosage: UNK
     Route: 065
  51. BUFEXAMAC\LIDOCAINE HYDROCHLORIDE [Suspect]
     Active Substance: BUFEXAMAC\LIDOCAINE HYDROCHLORIDE
     Indication: Constipation
     Dosage: UNK
     Route: 065
  52. HERBALS [Suspect]
     Active Substance: HERBALS
     Indication: Product used for unknown indication
     Dosage: UNK
     Route: 065
  53. CALCIUM ASCORBATE [Suspect]
     Active Substance: CALCIUM ASCORBATE
     Indication: Vitamin supplementation
     Dosage: UNK
     Route: 065
  54. CALCIUM CHLORIDE [Suspect]
     Active Substance: CALCIUM CHLORIDE
     Indication: Nutritional supplementation
     Dosage: UNK
     Route: 065
  55. CALCIUM GLUCONATE [Suspect]
     Active Substance: CALCIUM GLUCONATE
     Indication: Product used for unknown indication
     Dosage: UNK
     Route: 065
  56. CHLORAMPHENICOL [Suspect]
     Active Substance: CHLORAMPHENICOL
     Indication: Product used for unknown indication
     Dosage: UNK
     Route: 065
  57. CHLORAMPHENICOL PALMITATE [Suspect]
     Active Substance: CHLORAMPHENICOL PALMITATE
     Indication: Bacterial infection
     Dosage: UNK
     Route: 065
  58. CHLORAMPHENICOL\HYDROCORTISONE ACETATE\METRONIDAZOLE\NATAMYCIN [Suspect]
     Active Substance: CHLORAMPHENICOL\HYDROCORTISONE ACETATE\METRONIDAZOLE\NATAMYCIN
     Indication: Bacterial infection
     Dosage: UNK
     Route: 065
  59. CHLORPHENIRAMINE MALEATE [Suspect]
     Active Substance: CHLORPHENIRAMINE MALEATE
     Indication: Thrombosis
     Dosage: UNK
     Route: 065
  60. CHLORPHENIRAMINE [Suspect]
     Active Substance: CHLORPHENIRAMINE
     Indication: Thrombosis
     Dosage: UNK
     Route: 065
  61. CITRIC ACID [Suspect]
     Active Substance: CITRIC ACID MONOHYDRATE
     Indication: Nutritional supplementation
     Dosage: UNK
     Route: 065
  62. CORTISONE [Suspect]
     Active Substance: CORTISONE
     Indication: Angioedema
     Dosage: UNK
     Route: 065
  63. WARFARIN SODIUM [Suspect]
     Active Substance: WARFARIN SODIUM
     Indication: Thrombosis
     Dosage: UNK
     Route: 065
  64. DEXTROSE [Suspect]
     Active Substance: DEXTROSE MONOHYDRATE
     Indication: Anticoagulant therapy
     Dosage: 50 MILLILITER, QD
     Route: 042
  65. BETAMETHASONE DIPROPIONATE\CLIOQUINOL [Suspect]
     Active Substance: BETAMETHASONE DIPROPIONATE\CLIOQUINOL
     Indication: Swelling
     Dosage: 1 DOSAGE FORM, QD
     Route: 061
  66. BETAMETHASONE DIPROPIONATE\CLIOQUINOL [Suspect]
     Active Substance: BETAMETHASONE DIPROPIONATE\CLIOQUINOL
     Indication: Cardiogenic shock
  67. BETAMETHASONE DIPROPIONATE\CLIOQUINOL [Suspect]
     Active Substance: BETAMETHASONE DIPROPIONATE\CLIOQUINOL
     Indication: Bacterial infection
  68. DISTIGMINE BROMIDE [Suspect]
     Active Substance: DISTIGMINE BROMIDE
     Indication: Dyspnoea
     Dosage: UNK
     Route: 065
  69. DALTEPARIN SODIUM [Suspect]
     Active Substance: DALTEPARIN SODIUM
     Indication: Pulmonary embolism
     Dosage: 12.5 MILLILITER
     Route: 042
  70. DALTEPARIN SODIUM [Suspect]
     Active Substance: DALTEPARIN SODIUM
     Indication: Thrombosis
  71. DARBEPOETIN ALFA [Suspect]
     Active Substance: DARBEPOETIN ALFA
     Indication: Anaemia
     Dosage: 1 DOSAGE FORM, ONCE WEEKLY
     Route: 065
  72. DEXILANT [Suspect]
     Active Substance: DEXLANSOPRAZOLE
     Indication: Product used for unknown indication
     Dosage: 60 MILLIGRAM, QD
     Route: 048
  73. DEXILANT [Suspect]
     Active Substance: DEXLANSOPRAZOLE
     Dosage: 6 DOSAGE FORM, QID
     Route: 065
  74. DEXPANTHENOL [Suspect]
     Active Substance: DEXPANTHENOL
     Indication: Constipation
     Dosage: UNK
     Route: 065
  75. DEXTROSE\SODIUM CHLORIDE [Suspect]
     Active Substance: DEXTROSE\SODIUM CHLORIDE
     Indication: Nutritional supplementation
     Dosage: UNK
     Route: 065
  76. DIPYRONE [Suspect]
     Active Substance: DIPYRONE
     Indication: Vitamin supplementation
     Dosage: UNK
     Route: 030
  77. DOBUTAMINE [Suspect]
     Active Substance: DOBUTAMINE HYDROCHLORIDE
     Indication: Cardiogenic shock
     Dosage: UNK
     Route: 065
  78. DOCUSATE SODIUM [Suspect]
     Active Substance: DOCUSATE SODIUM
     Indication: Product used for unknown indication
     Dosage: UNK
     Route: 065
  79. DULCOLAX (BISACODYL) [Suspect]
     Active Substance: BISACODYL
     Indication: Constipation
     Dosage: 10 MILLIGRAM
     Route: 054
  80. DULCOLAX (BISACODYL) [Suspect]
     Active Substance: BISACODYL
     Indication: Ventricular fibrillation
  81. DULCOLAX (BISACODYL) [Suspect]
     Active Substance: BISACODYL
     Indication: Drug therapy
  82. FENOTEROL HYDROBROMIDE\IPRATROPIUM BROMIDE [Suspect]
     Active Substance: FENOTEROL HYDROBROMIDE\IPRATROPIUM BROMIDE
     Indication: Dyspnoea
     Dosage: UNK
     Route: 065
  83. ERGOCALCIFEROL [Suspect]
     Active Substance: ERGOCALCIFEROL
     Indication: Product used for unknown indication
     Dosage: UNK
     Route: 065
  84. FENOTEROL [Suspect]
     Active Substance: FENOTEROL
     Indication: Dyspnoea
     Dosage: UNK
     Route: 065
  85. FENOTEROL\IPRATROPIUM [Suspect]
     Active Substance: FENOTEROL\IPRATROPIUM
     Indication: Dyspnoea
     Dosage: 1 DOSAGE FORM (EVERY 0.33 DAY)
     Route: 065
  86. SODIUM FERRIC GLUCONATE COMPLEX [Suspect]
     Active Substance: SODIUM FERRIC GLUCONATE COMPLEX
     Indication: Iron deficiency
     Dosage: 4.64 MILLIGRAM
     Route: 065
  87. FERROUS SUCCINATE [Suspect]
     Active Substance: FERROUS SUCCINATE
     Indication: Iron deficiency
     Dosage: UNK, QID
     Route: 042
  88. FIASP [Suspect]
     Active Substance: INSULIN ASPART
     Indication: Diabetes mellitus
     Dosage: UNK
     Route: 058
  89. FISH OIL [Suspect]
     Active Substance: FISH OIL
     Indication: Nutritional supplementation
     Dosage: UNK
     Route: 065
  90. FLUTICASONE FUROATE [Suspect]
     Active Substance: FLUTICASONE FUROATE
     Indication: Nutritional supplementation
     Dosage: UNK
     Route: 065
  91. FLUTICASONE FUROATE\VILANTEROL TRIFENATATE [Suspect]
     Active Substance: FLUTICASONE FUROATE\VILANTEROL TRIFENATATE
     Indication: Nutritional supplementation
     Dosage: UNK
     Route: 065
  92. FLUTICASONE FUROATE\VILANTEROL TRIFENATATE [Suspect]
     Active Substance: FLUTICASONE FUROATE\VILANTEROL TRIFENATATE
     Indication: Dyspnoea
  93. FLUTICASONE FUROATE\VILANTEROL TRIFENATATE [Suspect]
     Active Substance: FLUTICASONE FUROATE\VILANTEROL TRIFENATATE
     Indication: Blood phosphorus increased
  94. FOSRENOL [Suspect]
     Active Substance: LANTHANUM CARBONATE
     Indication: Blood phosphorus increased
     Dosage: 500 MILLIGRAM, QD
     Route: 048
  95. FOSRENOL [Suspect]
     Active Substance: LANTHANUM CARBONATE
     Indication: Hyperphosphataemia
  96. FRAGMIN [Suspect]
     Active Substance: DALTEPARIN SODIUM
     Indication: Pulmonary embolism
     Dosage: 2.5 MILLILITER, PRN
     Route: 065
  97. FURAZOLIDONE [Suspect]
     Active Substance: FURAZOLIDONE
     Indication: Product used for unknown indication
     Dosage: 12.5 MILLIGRAM
     Route: 065
  98. DEXTROSE [Suspect]
     Active Substance: DEXTROSE MONOHYDRATE
     Indication: Nutritional supplementation
     Dosage: 12.5 MILLIGRAM, QD
     Route: 065
  99. DEXTROSE [Suspect]
     Active Substance: DEXTROSE MONOHYDRATE
     Indication: Anticoagulant therapy
     Dosage: 12.5 GRAM, QD
     Route: 042
  100. GLYCERYL MONOSTEARATE [Suspect]
     Active Substance: GLYCERYL MONOSTEARATE
     Indication: Constipation
     Dosage: UNK
     Route: 065
  101. HEPARIN SODIUM [Suspect]
     Active Substance: HEPARIN SODIUM
     Indication: Anticoagulant therapy
     Dosage: UNK
     Route: 042
  102. HYDROCORTISONE [Suspect]
     Active Substance: HYDROCORTISONE
     Indication: Product used for unknown indication
     Dosage: UNK
     Route: 065
  103. UNSPECIFIED INGREDIENT [Suspect]
     Active Substance: UNSPECIFIED INGREDIENT
     Indication: Anticoagulant therapy
     Dosage: 250 MILLILITER
     Route: 065
  104. HORSE CHESTNUT [Suspect]
     Active Substance: HORSE CHESTNUT
     Indication: Constipation
     Dosage: UNK
     Route: 065
  105. HYDROMORPHONE [Suspect]
     Active Substance: HYDROMORPHONE
     Indication: Analgesic therapy
     Dosage: 6 MILLIGRAM, QD
     Route: 065
  106. INSULIN ASPART [Suspect]
     Active Substance: INSULIN ASPART
     Indication: Diabetes mellitus
     Dosage: UNK
     Route: 048
  107. IPRATROPIUM [Suspect]
     Active Substance: IPRATROPIUM
     Indication: Dyspnoea
     Dosage: UNK
     Route: 065
  108. IPRATROPIUM BROMIDE [Suspect]
     Active Substance: IPRATROPIUM BROMIDE
     Indication: Dyspnoea
     Dosage: UNK
     Route: 065
  109. IPRATROPIUM BROMIDE\XYLOMETAZOLINE HYDROCHLORIDE [Suspect]
     Active Substance: IPRATROPIUM BROMIDE\XYLOMETAZOLINE HYDROCHLORIDE
     Indication: Dyspnoea
     Dosage: UNK
     Route: 065
  110. ALBUTEROL\IPRATROPIUM [Suspect]
     Active Substance: ALBUTEROL\IPRATROPIUM
     Indication: Dyspnoea
     Dosage: UNK
     Route: 065
  111. IRON [Suspect]
     Active Substance: IRON
     Indication: Iron deficiency
     Dosage: UNK
     Route: 065
  112. ISOPROPYL MYRISTATE [Suspect]
     Active Substance: ISOPROPYL MYRISTATE
     Indication: Constipation
     Dosage: UNK
     Route: 065
  113. LANTHANUM CARBONATE [Suspect]
     Active Substance: LANTHANUM CARBONATE
     Indication: Hyperphosphataemia
     Dosage: 500 MILLIGRAM
     Route: 054
  114. LANTHANUM CARBONATE [Suspect]
     Active Substance: LANTHANUM CARBONATE
     Indication: Blood phosphorus increased
     Dosage: 500 MILLIGRAM
     Route: 048
  115. LYPRESSIN [Suspect]
     Active Substance: LYPRESSIN
     Indication: Drug therapy
     Dosage: UNK
     Route: 042
  116. METRONIDAZOLE [Suspect]
     Active Substance: METRONIDAZOLE
     Indication: Bacterial infection
     Dosage: 500 MILLIGRAM, TID
     Route: 065
  117. PENTOSAN POLYSULFATE SODIUM [Suspect]
     Active Substance: PENTOSAN POLYSULFATE SODIUM
     Indication: Anticoagulant therapy
     Dosage: 250 MILLILITER, QD
     Route: 065
  118. MAALOX ANTACID [Suspect]
     Active Substance: ALUMINUM HYDROXIDE\DIMETHICONE\MAGNESIUM HYDROXIDE
     Indication: Constipation
     Dosage: UNK
     Route: 065
  119. POLYETHYLENE GLYCOLS [Suspect]
     Active Substance: POLYETHYLENE GLYCOLS
     Indication: Constipation
     Dosage: 17 GRAM, QD
     Route: 065
  120. MAGNESIUM OXIDE [Suspect]
     Active Substance: MAGNESIUM OXIDE
     Indication: Constipation
     Dosage: UNK
     Route: 065
  121. MAGNESIUM TRISILICATE [Suspect]
     Active Substance: MAGNESIUM TRISILICATE
     Indication: Constipation
     Dosage: 133 MILLILITER
     Route: 065
  122. MALTOSE [Suspect]
     Active Substance: MALTOSE
     Indication: Nutritional supplementation
     Dosage: UNK
     Route: 065
  123. MANNITOL [Suspect]
     Active Substance: MANNITOL
     Indication: Nutritional supplementation
     Dosage: UNK
     Route: 065
  124. MELATONIN [Suspect]
     Active Substance: MELATONIN
     Indication: Sleep disorder therapy
     Dosage: 3 MILLIGRAM, QD
     Route: 065
  125. METAMIZOLE SODIUM [Suspect]
     Active Substance: METAMIZOLE SODIUM
     Indication: Vitamin supplementation
     Dosage: UNK
     Route: 065
  126. MONOFERRIC [Suspect]
     Active Substance: FERRIC DERISOMALTOSE
     Indication: Nutritional supplementation
     Dosage: 12.5 GRAM
     Route: 042
  127. SODIUM PHOSPHATE, MONOBASIC [Suspect]
     Active Substance: SODIUM PHOSPHATE, MONOBASIC
     Indication: Constipation
     Dosage: 133 MILLILITER
     Route: 054
  128. NATAMYCIN [Suspect]
     Active Substance: NATAMYCIN
     Indication: Bacterial infection
     Dosage: UNK
     Route: 065
  129. NOREPINEPHRINE [Suspect]
     Active Substance: NOREPINEPHRINE
     Indication: Nutritional supplementation
     Dosage: 3 MILLIGRAM, QD
     Route: 042
  130. NOREPINEPHRINE [Suspect]
     Active Substance: NOREPINEPHRINE
     Indication: Stress
  131. NOREPINEPHRINE BITARTRATE [Suspect]
     Active Substance: NOREPINEPHRINE BITARTRATE
     Indication: Stress
     Dosage: UNK
     Route: 065
  132. DIETARY SUPPLEMENT [Suspect]
     Active Substance: DIETARY SUPPLEMENT
     Indication: Vitamin supplementation
     Dosage: UNK
     Route: 065
  133. METAMIZOLE SODIUM [Suspect]
     Active Substance: METAMIZOLE SODIUM
     Indication: Vitamin supplementation
     Dosage: UNK
     Route: 065
  134. NOVORAPID [Suspect]
     Active Substance: INSULIN ASPART
     Indication: Diabetes mellitus
     Dosage: UNK
     Route: 065
  135. ONDANSETRON [Suspect]
     Active Substance: ONDANSETRON
     Indication: Vomiting
     Dosage: 40 MILLIGRAM, TID
     Route: 042
  136. ONDANSETRON [Suspect]
     Active Substance: ONDANSETRON
     Indication: Nausea
     Dosage: 36 MILLIGRAM, TID
     Route: 065
  137. ONDANSETRON [Suspect]
     Active Substance: ONDANSETRON
     Dosage: 41.14 MILLIGRAM (EVERY 7 HOUR)
     Route: 048
  138. ONDANSETRON [Suspect]
     Active Substance: ONDANSETRON
     Dosage: 4 MILLIGRAM, QD
     Route: 065
  139. ONDANSETRON [Suspect]
     Active Substance: ONDANSETRON
     Dosage: 24 MILLIGRAM, QD
     Route: 065
  140. ONDANSETRON [Suspect]
     Active Substance: ONDANSETRON
     Dosage: 24 MILLIGRAM, QD
     Route: 065
  141. ONDANSETRON [Suspect]
     Active Substance: ONDANSETRON
     Dosage: 41.14 MILLIGRAM
     Route: 065
  142. ONDANSETRON [Suspect]
     Active Substance: ONDANSETRON
     Dosage: 4 MILLIGRAM, TID
     Route: 065
  143. ONDANSETRON [Suspect]
     Active Substance: ONDANSETRON
     Dosage: 36 MILLIGRAMS (EVERY 0.33 DAY)
     Route: 065
  144. ONDANSETRON [Suspect]
     Active Substance: ONDANSETRON
     Dosage: 24 MILLIGRAMS (EVERY 0.33 DAY)
     Route: 065
  145. ONDANSETRON [Suspect]
     Active Substance: ONDANSETRON
     Dosage: 8 MILLIGRAMS (EVERY 0.33 DAY)
     Route: 065
  146. ONDANSETRON [Suspect]
     Active Substance: ONDANSETRON
     Dosage: 8 MILLIGRAMS (EVERY 0.33 DAY)
     Route: 065
  147. ONDANSETRON [Suspect]
     Active Substance: ONDANSETRON
     Dosage: 41.14 MILLIGRAM, TID
     Route: 065
  148. ONDANSETRON [Suspect]
     Active Substance: ONDANSETRON
     Dosage: 12 MILLIGRAM, TID
     Route: 065
  149. ONDANSETRON [Suspect]
     Active Substance: ONDANSETRON
     Dosage: UNK, TID
     Route: 065
  150. ONDANSETRON [Suspect]
     Active Substance: ONDANSETRON
     Dosage: 108 MILLIGRAM, QD
     Route: 065
  151. ONDANSETRON [Suspect]
     Active Substance: ONDANSETRON
     Dosage: 14.14 MILLIGRAM
     Route: 065
  152. ONDANSETRON [Suspect]
     Active Substance: ONDANSETRON
     Dosage: 1 DOSAGE FORM, TID
     Route: 065
  153. ONDANSETRON [Suspect]
     Active Substance: ONDANSETRON
     Dosage: 8 MILLIGRAM, TID
     Route: 065
  154. ONDANSETRON [Suspect]
     Active Substance: ONDANSETRON
     Dosage: 24 MILLIGRAM, TID
     Route: 065
  155. ONDANSETRON [Suspect]
     Active Substance: ONDANSETRON
     Dosage: 12 MILLIGRAM, QD
     Route: 065
  156. ONDANSETRON [Suspect]
     Active Substance: ONDANSETRON
     Dosage: 36 MILLIGRAM
     Route: 065
  157. ONDANSETRON [Suspect]
     Active Substance: ONDANSETRON
     Dosage: 40 MILLIGRAM, QD
     Route: 065
  158. ONDANSETRON [Suspect]
     Active Substance: ONDANSETRON
     Dosage: 4 MILLIGRAM, EVERY 0.33 DAY
     Route: 065
  159. ONDANSETRON [Suspect]
     Active Substance: ONDANSETRON
     Dosage: 12 MILLIGRAM, EVERY 0.33 DAY
     Route: 065
  160. ONDANSETRON [Suspect]
     Active Substance: ONDANSETRON
     Dosage: 12 MILLIGRAM
     Route: 065
  161. ONDANSETRON [Suspect]
     Active Substance: ONDANSETRON
     Dosage: 12 DOSAGE FORM
     Route: 065
  162. ONDANSETRON [Suspect]
     Active Substance: ONDANSETRON
     Dosage: 14.14 MILLIGRAM, TID
     Route: 065
  163. ONDANSETRON [Suspect]
     Active Substance: ONDANSETRON
     Dosage: 36 MILLIGRAM, QD
     Route: 065
  164. ONDANSETRON [Suspect]
     Active Substance: ONDANSETRON
     Dosage: 1 DOSAGE FORM, QID
     Route: 065
  165. ONDANSETRON [Suspect]
     Active Substance: ONDANSETRON
     Dosage: 1 DOSAGE FORM, QD
     Route: 065
  166. ONDANSETRON [Suspect]
     Active Substance: ONDANSETRON
     Dosage: 40 MILLIGRAM EVERY 0.33 DAY
     Route: 065
  167. ONDANSETRON [Suspect]
     Active Substance: ONDANSETRON
     Dosage: 12 DOSAGE FORM, QD
     Route: 065
  168. ONDANSETRON [Suspect]
     Active Substance: ONDANSETRON
     Dosage: 8 MILLIGRAM
     Route: 065
  169. OTRIVIN [Suspect]
     Active Substance: XYLOMETAZOLINE
     Indication: Dyspnoea
     Dosage: UNK
     Route: 065
  170. HERBALS\PAULLINIA CUPANA SEED [Suspect]
     Active Substance: HERBALS\PAULLINIA CUPANA SEED
     Indication: Nutritional supplementation
     Dosage: 12.5 MILLIGRAM
     Route: 065
  171. PHYTONADIONE [Suspect]
     Active Substance: PHYTONADIONE
     Indication: Product used for unknown indication
     Dosage: 5 MILLIGRAM, QD
     Route: 065
  172. ASIAN GINSENG [Suspect]
     Active Substance: ASIAN GINSENG
     Indication: Nutritional supplementation
     Dosage: UNK
     Route: 065
  173. PHENOXYETHANOL [Suspect]
     Active Substance: PHENOXYETHANOL
     Indication: Constipation
     Dosage: UNK
     Route: 065
  174. POTASSIUM CHLORATE [Suspect]
     Active Substance: POTASSIUM CHLORATE
     Indication: Constipation
     Dosage: 17 MILLIGRAM
     Route: 048
  175. POTASSIUM CHLORIDE [Suspect]
     Active Substance: POTASSIUM CHLORIDE
     Indication: Constipation
     Dosage: 17 GRAM, QD
     Route: 048
  176. POTASSIUM CHLORIDE [Suspect]
     Active Substance: POTASSIUM CHLORIDE
     Indication: Nutritional supplementation
  177. POTASSIUM PERCHLORATE [Suspect]
     Active Substance: POTASSIUM PERCHLORATE
     Indication: Product used for unknown indication
     Dosage: UNK
     Route: 065
  178. PREVACID [Suspect]
     Active Substance: LANSOPRAZOLE
     Indication: Antacid therapy
     Dosage: 30 MILLIGRAM, QD
     Route: 065
  179. PROPYLENE GLYCOL [Suspect]
     Active Substance: PROPYLENE GLYCOL
     Indication: Product used for unknown indication
     Dosage: UNK
     Route: 065
  180. PYRIDOXINE HYDROCHLORIDE [Suspect]
     Active Substance: PYRIDOXINE HYDROCHLORIDE
     Indication: Vitamin supplementation
     Dosage: UNK, QD
     Route: 048
  181. PYRIDOXINE HYDROCHLORIDE [Suspect]
     Active Substance: PYRIDOXINE HYDROCHLORIDE
     Indication: Constipation
  182. VITAMIN A PALMITATE [Suspect]
     Active Substance: VITAMIN A PALMITATE
     Indication: Constipation
     Dosage: UNK
     Route: 065
  183. RAMIPRIL [Suspect]
     Active Substance: RAMIPRIL
     Indication: Product used for unknown indication
     Dosage: UNK
     Route: 065
  184. RIBOFLAVIN [Suspect]
     Active Substance: RIBOFLAVIN
     Indication: Product used for unknown indication
     Dosage: UNK
     Route: 048
  185. SODIUM FERRIC GLUCONATE COMPLEX [Suspect]
     Active Substance: SODIUM FERRIC GLUCONATE COMPLEX
     Indication: Product used for unknown indication
     Dosage: 4.64 MILLIGRAM (EVERY 4 WEEK)
     Route: 065
  186. STEARYL ALCOHOL [Suspect]
     Active Substance: STEARYL ALCOHOL
     Indication: Constipation
     Dosage: 17 GRAM
     Route: 065
  187. ALBUTEROL [Suspect]
     Active Substance: ALBUTEROL
     Indication: Chronic obstructive pulmonary disease
     Dosage: UNK
     Route: 065
  188. ALBUTEROL SULFATE [Suspect]
     Active Substance: ALBUTEROL SULFATE
     Indication: Chronic obstructive pulmonary disease
     Dosage: 1 DOSAGE FORM
     Route: 065
  189. ALBUTEROL SULFATE [Suspect]
     Active Substance: ALBUTEROL SULFATE
     Indication: Chronic obstructive pulmonary disease
     Dosage: 1 DOSAGE FORM, EVERY 1 HOUR
     Route: 065
  190. SIMVASTATIN [Suspect]
     Active Substance: SIMVASTATIN
     Indication: Blood cholesterol increased
     Dosage: UNK
     Route: 065
  191. SIMVASTATIN [Suspect]
     Active Substance: SIMVASTATIN
     Indication: Vitamin supplementation
  192. SIMVASTATIN [Suspect]
     Active Substance: SIMVASTATIN
     Indication: Blood cholesterol increased
     Dosage: UNK
     Route: 048
  193. SIMVASTATIN [Suspect]
     Active Substance: SIMVASTATIN
     Indication: Vitamin supplementation
  194. SODIUM BICARBONATE [Suspect]
     Active Substance: SODIUM BICARBONATE
     Indication: Nutritional supplementation
     Dosage: UNK
     Route: 065
  195. SODIUM CITRATE [Suspect]
     Active Substance: SODIUM CITRATE
     Indication: Product used for unknown indication
     Dosage: UNK
     Route: 065
  196. SODIUM PHOSPHATE [Suspect]
     Active Substance: SODIUM PHOSPHATE
     Indication: Product used for unknown indication
     Dosage: UNK
     Route: 065
  197. SODIUM PHOSPHATE, MONOBASIC [Suspect]
     Active Substance: SODIUM PHOSPHATE, MONOBASIC
     Indication: Constipation
     Dosage: UNK
     Route: 065
  198. SODIUM PICOSULFATE [Suspect]
     Active Substance: SODIUM PICOSULFATE
     Indication: Product used for unknown indication
     Dosage: UNK
     Route: 065
  199. STEARIC ACID [Suspect]
     Active Substance: STEARIC ACID
     Indication: Constipation
     Dosage: UNK
     Route: 065
  200. SUCROSE [Suspect]
     Active Substance: SUCROSE
     Indication: Constipation
     Dosage: UNK
     Route: 065
  201. TAMIFLU [Suspect]
     Active Substance: OSELTAMIVIR PHOSPHATE
     Indication: Chronic obstructive pulmonary disease
     Dosage: 12.5 GRAM
     Route: 065
  202. TITANIUM [Suspect]
     Active Substance: TITANIUM
     Indication: Chronic obstructive pulmonary disease
     Dosage: 1 DOSAGE FORM, QD
     Route: 065
  203. UMECLIDINIUM BROMIDE [Suspect]
     Active Substance: UMECLIDINIUM BROMIDE
     Indication: Dyspnoea
     Dosage: UNK
     Route: 065
  204. UMECLIDINIUM [Suspect]
     Active Substance: UMECLIDINIUM
     Indication: Dyspnoea
     Dosage: UNK
     Route: 065
  205. UMECLIDINIUM BROMIDE\VILANTEROL TRIFENATATE [Suspect]
     Active Substance: UMECLIDINIUM BROMIDE\VILANTEROL TRIFENATATE
     Indication: Dyspnoea
     Dosage: UNK
     Route: 065
  206. VILANTEROL [Suspect]
     Active Substance: VILANTEROL
     Indication: Dyspnoea
     Dosage: UNK
     Route: 065
  207. ASCORBIC ACID [Suspect]
     Active Substance: ASCORBIC ACID
     Indication: Constipation
     Dosage: 17 GRAM, QD
     Route: 065
  208. ASCORBIC ACID [Suspect]
     Active Substance: ASCORBIC ACID
     Indication: Vitamin supplementation
  209. VITAMIN K1 [Suspect]
     Active Substance: PHYTONADIONE
     Indication: Vitamin supplementation
     Dosage: 5 MILLIGRAM, QD
     Route: 042
  210. VILANTEROL TRIFENATATE [Suspect]
     Active Substance: VILANTEROL TRIFENATATE
     Indication: Dyspnoea
     Dosage: UNK
     Route: 065
  211. VITAMIN B6 [Suspect]
     Active Substance: PYRIDOXINE HYDROCHLORIDE
     Indication: Vitamin supplementation
     Dosage: UNK
     Route: 065
  212. XANTOFYL PALMITATE [Suspect]
     Active Substance: XANTOFYL PALMITATE
     Indication: Nutritional supplementation
     Dosage: 5 MILLIGRAM, QD
     Route: 065
  213. XYLOMETAZOLINE [Suspect]
     Active Substance: XYLOMETAZOLINE
     Indication: Dyspnoea
     Dosage: UNK
     Route: 065
  214. LUTEIN [Suspect]
     Active Substance: LUTEIN
     Indication: Nutritional supplementation
     Dosage: UNK
     Route: 065
  215. ZINC [Suspect]
     Active Substance: ZINC
     Indication: Vitamin supplementation
     Dosage: UNK
     Route: 065
  216. ZOCOR [Suspect]
     Active Substance: SIMVASTATIN
     Indication: Blood cholesterol increased
     Dosage: 40 MILLIGRAM, QD
     Route: 048
  217. ZOCOR [Suspect]
     Active Substance: SIMVASTATIN
     Indication: Vitamin supplementation
  218. ZOCOR [Suspect]
     Active Substance: SIMVASTATIN
     Indication: Intentional product misuse
  219. ZOCOR [Suspect]
     Active Substance: SIMVASTATIN
     Indication: Bacterial infection
  220. DISODIUM HYDROGEN CITRATE [Concomitant]
     Active Substance: DISODIUM HYDROGEN CITRATE
     Indication: Angioedema
     Dosage: 100 MILLIGRAM
  221. RIBOFLAVIN 5^-PHOSPHATE SODIUM ANHYDROUS [Concomitant]
     Active Substance: RIBOFLAVIN 5^-PHOSPHATE SODIUM ANHYDROUS
     Indication: Product used for unknown indication
     Dosage: UNK
     Route: 065

REACTIONS (53)
  - Activated partial thromboplastin time prolonged [Fatal]
  - Iron deficiency anaemia [Fatal]
  - Appendicitis [Fatal]
  - Appendicolith [Fatal]
  - Aortic stenosis [Fatal]
  - Ascites [Fatal]
  - Abdominal distension [Fatal]
  - Bacteroides infection [Fatal]
  - Blood calcium increased [Fatal]
  - Hyperlipidaemia [Fatal]
  - Blood creatinine increased [Fatal]
  - Blood test abnormal [Fatal]
  - Cardiogenic shock [Fatal]
  - Chronic obstructive pulmonary disease [Fatal]
  - Condition aggravated [Fatal]
  - Drug hypersensitivity [Fatal]
  - Drug intolerance [Fatal]
  - End stage renal disease [Fatal]
  - General physical health deterioration [Fatal]
  - Gout [Fatal]
  - Hyperphosphataemia [Fatal]
  - Hypophosphataemia [Fatal]
  - Hypertension [Fatal]
  - Lower respiratory tract infection [Fatal]
  - Lung opacity [Fatal]
  - Multiple organ dysfunction syndrome [Fatal]
  - Musculoskeletal stiffness [Fatal]
  - Myasthenia gravis [Fatal]
  - Neuralgia [Fatal]
  - Oedema peripheral [Fatal]
  - Pleural effusion [Fatal]
  - Pulmonary embolism [Fatal]
  - Pneumonia [Fatal]
  - Sepsis [Fatal]
  - Sleep disorder [Fatal]
  - Swelling [Fatal]
  - Thrombosis [Fatal]
  - Troponin increased [Fatal]
  - Ulcer [Fatal]
  - Ventricular fibrillation [Fatal]
  - Abdominal pain [Fatal]
  - Constipation [Fatal]
  - Dry mouth [Fatal]
  - Diabetes mellitus [Fatal]
  - Vomiting [Fatal]
  - Somnolence [Fatal]
  - Nausea [Fatal]
  - Total lung capacity decreased [Fatal]
  - Intentional product misuse [Fatal]
  - Inappropriate schedule of product administration [Fatal]
  - Drug ineffective [Fatal]
  - Incorrect route of product administration [Fatal]
  - Off label use [Fatal]
